FAERS Safety Report 23221530 (Version 3)
Quarter: 2023Q4

REPORT INFORMATION
  Report Type: Report from Study
  Country: CO (occurrence: CO)
  Receive Date: 20231123
  Receipt Date: 20231206
  Transmission Date: 20240110
  Serious: Yes (Hospitalization, Other)
  Sender: FDA-Public Use
  Company Number: CO-ASTELLAS-2023US035222

PATIENT
  Age: 76 Year
  Sex: Female
  Weight: 54 kg

DRUGS (1)
  1. TACROLIMUS [Suspect]
     Active Substance: TACROLIMUS
     Indication: Renal transplant
     Dosage: 2.5 MG, ONCE DAILY (2 CAPSULES OF 1 MG, AND 1 CAPSULE OF 0.5)
     Route: 048
     Dates: start: 20200819

REACTIONS (4)
  - Generalised oedema [Recovering/Resolving]
  - Abdominal pain [Recovering/Resolving]
  - Clostridial infection [Recovering/Resolving]
  - Urinary tract infection [Recovered/Resolved]

NARRATIVE: CASE EVENT DATE: 20230801
